FAERS Safety Report 7559840-2 (Version None)
Quarter: 2011Q2

REPORT INFORMATION
  Report Type: 
  Country: None (occurrence: None)
  Receive Date: 20110621
  Receipt Date: 20110616
  Transmission Date: 20111010
  Serious: Yes (Death, Other)
  Sender: FDA-Public Use
  Company Number: PHHY2011FR53392

PATIENT
  Age: 61 Year
  Sex: Female

DRUGS (2)
  1. VANCOMYCIN HCL [Suspect]
     Dosage: 1 G, TID
     Route: 042
     Dates: start: 20101123, end: 20101125
  2. PIPERACILLIN AND TAZOBACTAM [Suspect]
     Dosage: 4 G, TID
     Route: 042
     Dates: start: 20101123, end: 20101125

REACTIONS (7)
  - AUTOIMMUNE THROMBOCYTOPENIA [None]
  - HAEMODYNAMIC INSTABILITY [None]
  - PURPURA [None]
  - BRAIN STEM HAEMORRHAGE [None]
  - HAEMORRHAGIC DIATHESIS [None]
  - MEGAKARYOCYTES [None]
  - ANAEMIA [None]
